FAERS Safety Report 17575088 (Version 1)
Quarter: 2020Q1

REPORT INFORMATION
  Report Type: Spontaneous
  Country: US (occurrence: US)
  Receive Date: 20200324
  Receipt Date: 20200324
  Transmission Date: 20200409
  Serious: No
  Sender: FDA-Public Use
  Company Number: US-JNJFOC-20200241992

PATIENT
  Sex: Female
  Weight: 61.74 kg

DRUGS (1)
  1. PEPCID AC [Suspect]
     Active Substance: FAMOTIDINE
     Indication: ANTACID THERAPY
     Dosage: 2 - 10 MG TABLETS TWICE A DAY
     Route: 048
     Dates: start: 202002

REACTIONS (1)
  - Prescribed overdose [Unknown]
